FAERS Safety Report 14793985 (Version 1)
Quarter: 2018Q2

REPORT INFORMATION
  Report Type: Spontaneous
  Country: DE (occurrence: DE)
  Receive Date: 20180423
  Receipt Date: 20180423
  Transmission Date: 20180711
  Serious: Yes (Hospitalization)
  Sender: FDA-Public Use
  Company Number: DE-TEVA-2018-DE-884452

PATIENT
  Age: 69 Year
  Sex: Female
  Weight: 85 kg

DRUGS (6)
  1. LETROZOL 2,5 MG [Suspect]
     Active Substance: LETROZOLE
     Indication: METASTASES TO LUNG
     Dosage: 2.5 MILLIGRAM DAILY;
     Dates: start: 201609, end: 20180131
  2. RAMILICH 5 MG TABLETTEN [Concomitant]
     Active Substance: RAMIPRIL
     Indication: HYPERTENSION
     Dates: start: 2017
  3. NITRANGIN [Concomitant]
     Dosage: APPLICATION ON DEMAND
     Route: 065
  4. METOHEXAL 95MG [Concomitant]
     Indication: HYPERTENSION
     Dosage: TAKING FOR 8 YEARS
     Route: 048
  5. SALBUTAMOL [Concomitant]
     Active Substance: ALBUTEROL
     Indication: BRONCHITIS
     Dosage: INTAKE ON DEMAND
     Route: 065
  6. ALLOPURINOL 300MG [Concomitant]
     Active Substance: ALLOPURINOL
     Indication: GOUT
     Dosage: 300 MILLIGRAM DAILY;
     Dates: start: 2017

REACTIONS (4)
  - Palpitations [Unknown]
  - Tremor [Unknown]
  - Blood pressure increased [Unknown]
  - Chills [Unknown]

NARRATIVE: CASE EVENT DATE: 20180131
